FAERS Safety Report 6250269-6 (Version None)
Quarter: 2009Q2

REPORT INFORMATION
  Report Type: 
  Country: None (occurrence: None)
  Receive Date: 20090626
  Receipt Date: 20090626
  Transmission Date: 20091009
  Serious: No
  Sender: FDA-Public Use
  Company Number: None

PATIENT
  Sex: Male
  Weight: 80 kg

DRUGS (6)
  1. LOVENOX [Suspect]
     Indication: ACUTE MYOCARDIAL INFARCTION
     Dosage: 40 MG DAILY SUB-Q
     Route: 058
     Dates: start: 20090506
  2. NEXIUM [Concomitant]
  3. ZOFRAN [Concomitant]
  4. ZOSYN [Concomitant]
  5. LIPITOR [Concomitant]
  6. CORDARONE [Concomitant]

REACTIONS (1)
  - PLATELET COUNT DECREASED [None]
